FAERS Safety Report 7243722-X (Version None)
Quarter: 2011Q1

REPORT INFORMATION
  Report Type: 
  Country: None (occurrence: None)
  Receive Date: 20110125
  Receipt Date: 20100519
  Transmission Date: 20110831
  Serious: Yes (Other)
  Sender: FDA-Public Use
  Company Number: US-PFIZER INC-2010045177

PATIENT
  Age: 86 Year
  Sex: Male

DRUGS (1)
  1. PROCARDIA [Suspect]

REACTIONS (1)
  - OEDEMA [None]
